FAERS Safety Report 23878904 (Version 1)
Quarter: 2024Q2

REPORT INFORMATION
  Report Type: Report from Study
  Country: US (occurrence: US)
  Receive Date: 20240521
  Receipt Date: 20240521
  Transmission Date: 20240716
  Serious: Yes (Other)
  Sender: FDA-Public Use
  Company Number: US-JNJFOC-20230927331

PATIENT
  Age: 55 Year
  Sex: Male
  Weight: 77.7 kg

DRUGS (1)
  1. TALQUETAMAB [Suspect]
     Active Substance: TALQUETAMAB
     Indication: Plasma cell myeloma
     Dosage: 78 KG (780 MCG)?STEP-UP DOSE?800 MCG/KG- FULL DOSE
     Route: 058
     Dates: start: 20230907

REACTIONS (6)
  - Thrombocytopenia [Recovering/Resolving]
  - Neutropenia [Recovering/Resolving]
  - Cytokine release syndrome [Recovered/Resolved]
  - Hyperkalaemia [Recovering/Resolving]
  - Hypocalcaemia [Unknown]
  - Anaemia [Recovering/Resolving]

NARRATIVE: CASE EVENT DATE: 20230901
